FAERS Safety Report 16895747 (Version 4)
Quarter: 2020Q4

REPORT INFORMATION
  Report Type: Spontaneous
  Country: JP (occurrence: JP)
  Receive Date: 20191008
  Receipt Date: 20201015
  Transmission Date: 20210113
  Serious: Yes (Other)
  Sender: FDA-Public Use
  Company Number: JP-BAUSCH-BL-2019-056952

PATIENT
  Age: 63 Year
  Sex: Male

DRUGS (2)
  1. LUMICEF [Suspect]
     Active Substance: BRODALUMAB
     Indication: OFF LABEL USE
  2. LUMICEF [Suspect]
     Active Substance: BRODALUMAB
     Indication: PEMPHIGOID
     Dosage: SYRINGE
     Route: 058

REACTIONS (3)
  - Erythema multiforme [Recovering/Resolving]
  - Off label use [Recovered/Resolved]
  - Drug eruption [Recovering/Resolving]
